FAERS Safety Report 22236374 (Version 1)
Quarter: 2023Q2

REPORT INFORMATION
  Report Type: Spontaneous
  Country: US (occurrence: None)
  Receive Date: 20230420
  Receipt Date: 20230420
  Transmission Date: 20230722
  Serious: No
  Sender: FDA-Public Use
  Company Number: US-ROCHE-3214129

PATIENT

DRUGS (1)
  1. AVASTIN [Suspect]
     Active Substance: BEVACIZUMAB
     Indication: Ovarian cancer stage III
     Dosage: 88.5 MG (15 MG/KG) EVERY 3 WEEKS ;ONGOING: YES
     Route: 042
     Dates: start: 202103

REACTIONS (1)
  - Gingival erosion [Not Recovered/Not Resolved]

NARRATIVE: CASE EVENT DATE: 20221001
